FAERS Safety Report 5373408-8 (Version None)
Quarter: 2007Q2

REPORT INFORMATION
  Report Type: 
  Country: None (occurrence: None)
  Receive Date: 20070628
  Receipt Date: 20070620
  Transmission Date: 20071010
  Serious: Yes (Other)
  Sender: FDA-Public Use
  Company Number: BR-AVENTIS-200712776EU

PATIENT
  Age: 84 Year
  Sex: Male
  Weight: 52 kg

DRUGS (5)
  1. TRENTAL [Suspect]
     Route: 048
     Dates: start: 20070505, end: 20070531
  2. PRESSAT [Concomitant]
     Indication: HYPERTENSION
     Dosage: DOSE: UNK
  3. OMEPRAZOLE [Concomitant]
     Dosage: DOSE: UNK
  4. ICTUS [Concomitant]
     Dosage: DOSE: UNK
  5. DIAZEPAM [Concomitant]
     Dosage: DOSE: UNK

REACTIONS (1)
  - PRIAPISM [None]
